FAERS Safety Report 8485911-2 (Version None)
Quarter: 2012Q3

REPORT INFORMATION
  Report Type: 
  Country: None (occurrence: None)
  Receive Date: 20120703
  Receipt Date: 20120620
  Transmission Date: 20120928
  Serious: Yes (Other)
  Sender: FDA-Public Use
  Company Number: LB-INCYTE CORPORATION-2012IN001135

PATIENT
  Sex: Female

DRUGS (2)
  1. INC424 [Suspect]
     Indication: MYELOFIBROSIS
     Dosage: 20 MG, BID
     Route: 048
     Dates: start: 20120508, end: 20120618
  2. IRON [Concomitant]

REACTIONS (2)
  - PANCYTOPENIA [None]
  - SYNCOPE [None]
